FAERS Safety Report 13429985 (Version 1)
Quarter: 2017Q2

REPORT INFORMATION
  Report Type: Spontaneous
  Country: US (occurrence: US)
  Receive Date: 20170411
  Receipt Date: 20170411
  Transmission Date: 20170830
  Serious: Yes (Other)
  Sender: FDA-Public Use
  Company Number: None

PATIENT
  Age: 26 Year
  Sex: Female
  Weight: 51.75 kg

DRUGS (4)
  1. LATUDA [Concomitant]
     Active Substance: LURASIDONE HYDROCHLORIDE
  2. TRAZODONE [Concomitant]
     Active Substance: TRAZODONE HYDROCHLORIDE
  3. SEROQUEL [Concomitant]
     Active Substance: QUETIAPINE FUMARATE
  4. ABILIFY [Suspect]
     Active Substance: ARIPIPRAZOLE

REACTIONS (1)
  - Mental impairment [None]

NARRATIVE: CASE EVENT DATE: 20150608
